FAERS Safety Report 11005107 (Version 2)
Quarter: 2015Q2

REPORT INFORMATION
  Report Type: Spontaneous
  Country: US (occurrence: US)
  Receive Date: 20150409
  Receipt Date: 20150507
  Transmission Date: 20150821
  Serious: No
  Sender: FDA-Public Use
  Company Number: US-PFIZER INC-2015120133

PATIENT
  Age: 74 Year
  Sex: Male
  Weight: 63.49 kg

DRUGS (2)
  1. CORTISONE [Suspect]
     Active Substance: CORTISONE\HYDROCORTISONE
     Indication: RASH
     Dosage: UNK
  2. TRIAMCINOLONE ACETONIDE. [Suspect]
     Active Substance: TRIAMCINOLONE ACETONIDE
     Indication: RASH
     Dosage: UNK

REACTIONS (3)
  - Limb discomfort [Not Recovered/Not Resolved]
  - Scratch [Not Recovered/Not Resolved]
  - Drug ineffective [Not Recovered/Not Resolved]
